FAERS Safety Report 17220606 (Version 1)
Quarter: 2019Q4

REPORT INFORMATION
  Report Type: Spontaneous
  Country: DE (occurrence: DE)
  Receive Date: 20191231
  Receipt Date: 20191231
  Transmission Date: 20200122
  Serious: Yes (Congenital Anomaly, Other)
  Sender: FDA-Public Use
  Company Number: DE-MYLANLABS-2019M1132054

PATIENT
  Age: 1 Day
  Sex: Female
  Weight: 2.85 kg

DRUGS (8)
  1. L-THYROX HEXAL [Concomitant]
     Active Substance: LEVOTHYROXINE SODIUM
     Indication: HYPOTHYROIDISM
     Dosage: 37.5 MICROGRAM, QD, 37.5 [?G/D (1.5 TABL.) ]
     Route: 064
     Dates: start: 20180619, end: 20190409
  2. AERODUR [Concomitant]
     Indication: ASTHMA
     Dosage: IF NEEDED
     Route: 064
  3. VIANI [Concomitant]
     Active Substance: FLUTICASONE PROPIONATE\SALMETEROL XINAFOATE
     Indication: ASTHMA
     Dosage: UNK
     Route: 064
     Dates: start: 20180619, end: 20180808
  4. SALBUHEXAL                         /00139501/ [Concomitant]
     Indication: ASTHMA
     Dosage: IF NEEDED.
     Route: 064
  5. ALVESCO [Suspect]
     Active Substance: CICLESONIDE
     Indication: ASTHMA
     Dosage: 160 [?G/D (1X/D, ABENDS) ]
     Route: 064
     Dates: start: 20180619, end: 20180814
  6. SEREVENT DISKUS [Concomitant]
     Active Substance: SALMETEROL XINAFOATE
     Indication: ASTHMA
     Dosage: 100 [?G/D (BIS 50 ?G/D, NACH BEDARF) ]
     Route: 064
     Dates: start: 20181004, end: 20190409
  7. FAMENITA [Concomitant]
     Active Substance: PROGESTERONE
     Indication: PROPHYLAXIS OF ABORTION
     Dosage: 100 MILLIGRAM, QD
     Route: 064
     Dates: start: 20180619, end: 20180810
  8. NOVOPULMON 400 NOVOLIZER, PULVER ZUR INHALATION [Suspect]
     Active Substance: BUDESONIDE
     Indication: ASTHMA
     Dosage: 1.6 MILLIGRAM, QD, 1.6 [MG/D (BIS 0.8 MG/D) ]
     Route: 064
     Dates: start: 20180815, end: 20190409

REACTIONS (5)
  - Foetal exposure during pregnancy [Recovered/Resolved]
  - Small for dates baby [Recovering/Resolving]
  - Atrial septal defect [Recovering/Resolving]
  - Patent ductus arteriosus [Recovering/Resolving]
  - Ventricular septal defect [Not Recovered/Not Resolved]

NARRATIVE: CASE EVENT DATE: 20190409
